FAERS Safety Report 5264817-6 (Version None)
Quarter: 2007Q1

REPORT INFORMATION
  Report Type: 
  Country: None (occurrence: None)
  Receive Date: 20070314
  Receipt Date: 20070309
  Transmission Date: 20070707
  Serious: Yes (Hospitalization)
  Sender: FDA-Public Use
  Company Number: CA-GLAXOSMITHKLINE-A0642478A

PATIENT
  Sex: Male
  Weight: 88.2 kg

DRUGS (10)
  1. DUTASTERIDE [Suspect]
     Indication: PROSTATE CANCER
     Dosage: .5MG PER DAY
     Route: 048
     Dates: start: 20051229, end: 20060104
  2. KETOCONAZOLE [Suspect]
     Indication: PROSTATE CANCER
     Dosage: 400MG THREE TIMES PER DAY
     Route: 048
     Dates: start: 20051229, end: 20060104
  3. HYDROCORTISONE [Suspect]
     Indication: PROSTATE CANCER
     Dosage: 40MG TWICE PER DAY
     Route: 048
     Dates: start: 20051229, end: 20060119
  4. EZETIMIBE [Concomitant]
     Route: 048
  5. ENALAPRIL MALEATE [Concomitant]
     Dosage: 40MG TWICE PER DAY
     Route: 048
  6. NADOLOL [Concomitant]
     Dosage: 80MG PER DAY
     Route: 048
  7. HYDROCHLOROTHIAZIDE [Concomitant]
     Dosage: 25MG PER DAY
     Route: 048
  8. ASPIRIN [Concomitant]
     Dosage: 81MG PER DAY
     Route: 048
  9. ZOLADEX [Concomitant]
     Dosage: 10.8MG SEE DOSAGE TEXT
     Route: 030
     Dates: start: 19950101
  10. CASODEX [Concomitant]
     Dosage: 50MG PER DAY
     Route: 048
     Dates: start: 19950101

REACTIONS (3)
  - DEATH [None]
  - DYSPNOEA [None]
  - PULMONARY OEDEMA [None]
